FAERS Safety Report 5691594-7 (Version None)
Quarter: 2008Q2

REPORT INFORMATION
  Report Type: 
  Country: None (occurrence: None)
  Receive Date: 20080402
  Receipt Date: 20080325
  Transmission Date: 20081010
  Serious: Yes (Hospitalization)
  Sender: FDA-Public Use
  Company Number: US-AMGEN-US263018

PATIENT
  Sex: Female
  Weight: 40.9 kg

DRUGS (3)
  1. PROCRIT [Suspect]
     Indication: RENAL FAILURE CHRONIC
     Route: 058
     Dates: start: 20071101
  2. COREG [Suspect]
  3. PHENYTOIN [Concomitant]
     Dates: start: 20071101

REACTIONS (4)
  - ANAEMIA [None]
  - BIOPSY BONE MARROW ABNORMAL [None]
  - HYPERPARATHYROIDISM [None]
  - PNEUMONIA [None]
